FAERS Safety Report 4956227-3 (Version None)
Quarter: 2006Q1

REPORT INFORMATION
  Report Type: 
  Country: None (occurrence: None)
  Receive Date: 20060323
  Receipt Date: 20060309
  Transmission Date: 20060701
  Serious: Yes (Disabling)
  Sender: FDA-Public Use
  Company Number: 8015562

PATIENT
  Age: 6 Year
  Sex: Male

DRUGS (4)
  1. KEPPRA [Suspect]
     Indication: EPILEPSY
     Dosage: 500 MG /D PO
     Route: 048
     Dates: start: 20060201, end: 20060101
  2. KEPPRA [Suspect]
     Indication: EPILEPSY
     Dosage: 750 MG /D PO
     Route: 048
     Dates: start: 20060101
  3. MICROPAKINE [Concomitant]
  4. RIVOTRIL [Concomitant]

REACTIONS (5)
  - ABNORMAL BEHAVIOUR [None]
  - GENERAL PHYSICAL HEALTH DETERIORATION [None]
  - MENTAL IMPAIRMENT [None]
  - SPEECH DISORDER [None]
  - URINARY INCONTINENCE [None]
